FAERS Safety Report 24593857 (Version 2)
Quarter: 2025Q1

REPORT INFORMATION
  Report Type: Report from Study
  Country: CL (occurrence: CL)
  Receive Date: 20241108
  Receipt Date: 20250109
  Transmission Date: 20250409
  Serious: Yes (Death, Other)
  Sender: TAKEDA
  Company Number: CL-TAKEDA-2024TUS112566

PATIENT
  Age: 21 Year
  Sex: Female
  Weight: 74 kg

DRUGS (1)
  1. IDURSULFASE [Suspect]
     Active Substance: IDURSULFASE
     Indication: Mucopolysaccharidosis II
     Dosage: 0.5 MILLIGRAM/KILOGRAM, 1/WEEK

REACTIONS (1)
  - Death [Fatal]

NARRATIVE: CASE EVENT DATE: 20241106
